FAERS Safety Report 6061229-2 (Version None)
Quarter: 2009Q1

REPORT INFORMATION
  Report Type: 
  Country: None (occurrence: None)
  Receive Date: 20090202
  Receipt Date: 20090128
  Transmission Date: 20090719
  Serious: Yes (Hospitalization)
  Sender: FDA-Public Use
  Company Number: US-GILEAD-2008-0019269

PATIENT
  Sex: Female
  Weight: 59.474 kg

DRUGS (9)
  1. LETAIRIS [Suspect]
     Indication: PULMONARY ARTERIAL HYPERTENSION
     Route: 048
     Dates: start: 20071004
  2. VENTAVIS [Concomitant]
  3. LASIX [Concomitant]
  4. CRESTOR [Concomitant]
  5. FELODIPINE [Concomitant]
  6. LEVOTHYROXINE SODIUM [Concomitant]
  7. ASPIRIN [Concomitant]
  8. NEXIUM [Concomitant]
  9. TYLENOL [Concomitant]

REACTIONS (1)
  - HEPATIC ENZYME INCREASED [None]
